FAERS Safety Report 8032412-1 (Version None)
Quarter: 2012Q1

REPORT INFORMATION
  Report Type: 
  Country: None (occurrence: None)
  Receive Date: 20120109
  Receipt Date: 20120109
  Transmission Date: 20120608
  Serious: Yes (Hospitalization)
  Sender: FDA-Public Use
  Company Number: None

PATIENT
  Sex: Female
  Weight: 58.0604 kg

DRUGS (8)
  1. MORPHINE [Concomitant]
  2. HYDROMORPHONE HCL [Concomitant]
  3. ACETAMINOPHEN [Concomitant]
  4. VANCOMYCIN [Suspect]
     Indication: OSTEOMYELITIS
     Dosage: 1.5 GM IV Q12 HOURS THEN ADMITTED TO HOSPITAL
     Route: 042
     Dates: start: 20111210, end: 20111211
  5. VANCOMYCIN [Suspect]
  6. VANCOMYCIN [Suspect]
  7. VANCOMYCIN [Suspect]
  8. PROMETHAZINE [Concomitant]

REACTIONS (2)
  - HEADACHE [None]
  - NAUSEA [None]
